FAERS Safety Report 12591678 (Version 1)
Quarter: 2016Q3

REPORT INFORMATION
  Report Type: Spontaneous
  Country: US (occurrence: None)
  Receive Date: 20160725
  Receipt Date: 20160725
  Transmission Date: 20161109
  Serious: Yes (Hospitalization)
  Sender: FDA-Public Use
  Company Number: None

PATIENT
  Age: 62 Year
  Sex: Female

DRUGS (28)
  1. LYRICA [Concomitant]
     Active Substance: PREGABALIN
  2. VITAMIN B12 [Concomitant]
     Active Substance: CYANOCOBALAMIN
  3. RANITIDINE. [Concomitant]
     Active Substance: RANITIDINE
  4. OXYIR [Concomitant]
     Active Substance: OXYCODONE HYDROCHLORIDE
  5. PANTOPRAZOLE [Concomitant]
     Active Substance: PANTOPRAZOLE SODIUM
  6. VITAMIN D3 [Concomitant]
     Active Substance: CHOLECALCIFEROL
  7. METOPROLOL TARTRATE. [Concomitant]
     Active Substance: METOPROLOL TARTRATE
  8. PREDNISONE. [Concomitant]
     Active Substance: PREDNISONE
  9. FENTANYL. [Concomitant]
     Active Substance: FENTANYL
  10. ENBREL [Suspect]
     Active Substance: ETANERCEPT
     Indication: RHEUMATOID ARTHRITIS
     Route: 058
     Dates: start: 20080312
  11. CYMBALTA [Concomitant]
     Active Substance: DULOXETINE HYDROCHLORIDE
  12. TRUETEST [Concomitant]
  13. IBANDRONATE [Concomitant]
     Active Substance: IBANDRONATE SODIUM
  14. POLYETH GLYC [Concomitant]
     Active Substance: POLYETHYLENE GLYCOLS
  15. ACIPHEX [Concomitant]
     Active Substance: RABEPRAZOLE SODIUM
  16. CORDRAN [Concomitant]
     Active Substance: FLURANDRENOLIDE
  17. OXAPROZIN. [Concomitant]
     Active Substance: OXAPROZIN
  18. LOVASTATIN. [Concomitant]
     Active Substance: LOVASTATIN
  19. OXYCODONE [Concomitant]
     Active Substance: OXYCODONE
  20. NABUMETONE. [Concomitant]
     Active Substance: NABUMETONE
  21. NATURE-THROID [Concomitant]
     Active Substance: THYROID, PORCINE
  22. SULINDAC. [Concomitant]
     Active Substance: SULINDAC
  23. ATORVASTATIN [Concomitant]
     Active Substance: ATORVASTATIN
  24. OMEPRAZOLE. [Concomitant]
     Active Substance: OMEPRAZOLE
  25. ENBREL [Concomitant]
     Active Substance: ETANERCEPT
  26. AMLODIPINE [Concomitant]
     Active Substance: AMLODIPINE BESYLATE
  27. CLEARLAX [Concomitant]
     Active Substance: POLYETHYLENE GLYCOL 3350
  28. PREVACID [Concomitant]
     Active Substance: LANSOPRAZOLE

REACTIONS (5)
  - Pain in extremity [None]
  - Tendonitis [None]
  - Dehydration [None]
  - Periostitis [None]
  - Vomiting [None]

NARRATIVE: CASE EVENT DATE: 2016
